FAERS Safety Report 9171327 (Version 1)
Quarter: 2013Q1

REPORT INFORMATION
  Report Type: Spontaneous
  Country: US (occurrence: US)
  Receive Date: 20130319
  Receipt Date: 20130319
  Transmission Date: 20140127
  Serious: No
  Sender: FDA-Public Use
  Company Number: US-009507513-1303USA008633

PATIENT
  Sex: Male

DRUGS (4)
  1. REBETOL [Suspect]
     Indication: CHRONIC HEPATITIS C
     Dosage: UNK
     Dates: start: 20110101, end: 20110601
  2. REBETOL [Suspect]
     Dosage: UNK
     Dates: start: 20120414
  3. PEGASYS [Suspect]
     Indication: CHRONIC HEPATITIS C
     Dosage: UNK
     Dates: start: 20110101, end: 20110601
  4. PEGASYS [Suspect]
     Dosage: UNK
     Dates: start: 20120414

REACTIONS (2)
  - Drug ineffective [Unknown]
  - Therapeutic response decreased [Unknown]
